FAERS Safety Report 9031142 (Version 6)
Quarter: 2014Q3

REPORT INFORMATION
  Report Type: Spontaneous
  Country: US (occurrence: US)
  Receive Date: 20130123
  Receipt Date: 20140905
  Transmission Date: 20150326
  Serious: Yes (Disabling)
  Sender: FDA-Public Use
  Company Number: US-009507513-1301USA010091

PATIENT
  Sex: Male

DRUGS (2)
  1. PROPECIA [Suspect]
     Active Substance: FINASTERIDE
     Dosage: 1 MG, UNK
     Dates: start: 201303
  2. PROPECIA [Suspect]
     Active Substance: FINASTERIDE
     Indication: ALOPECIA
     Dosage: 1 MG, QD
     Route: 048
     Dates: start: 20040104, end: 20120705

REACTIONS (12)
  - Sexual dysfunction [Unknown]
  - Alopecia [Unknown]
  - Erectile dysfunction [Unknown]
  - Emotional distress [Unknown]
  - Amnesia [Not Recovered/Not Resolved]
  - Arthroscopy [Unknown]
  - Blood cholesterol increased [Unknown]
  - Confusional state [Unknown]
  - Hypertension [Unknown]
  - Anxiety [Not Recovered/Not Resolved]
  - Hyperlipidaemia [Unknown]
  - Bone cyst [Unknown]

NARRATIVE: CASE EVENT DATE: 200502
